FAERS Safety Report 7728301-X (Version None)
Quarter: 2011Q3

REPORT INFORMATION
  Report Type: 
  Country: None (occurrence: None)
  Receive Date: 20110905
  Receipt Date: 20110830
  Transmission Date: 20111222
  Serious: Yes (Other)
  Sender: FDA-Public Use
  Company Number: PHHY2010CY11317

PATIENT
  Sex: Male

DRUGS (4)
  1. ZOMETA [Suspect]
     Indication: PROPHYLAXIS
     Dosage: 4 MG, QMO
     Dates: start: 20091030
  2. OXYCONTIN [Concomitant]
  3. GEMZAR [Concomitant]
  4. CARBOPLATIN [Concomitant]

REACTIONS (1)
  - HYPERCALCAEMIA [None]
